FAERS Safety Report 10668057 (Version 7)
Quarter: 2015Q3

REPORT INFORMATION
  Report Type: Spontaneous
  Country: US (occurrence: US)
  Receive Date: 20141222
  Receipt Date: 20150707
  Transmission Date: 20151125
  Serious: Yes (Hospitalization, Other)
  Sender: FDA-Public Use
  Company Number: US-009507513-1412USA007994

PATIENT
  Sex: Female
  Weight: 81.63 kg

DRUGS (8)
  1. QVAR [Concomitant]
     Active Substance: BECLOMETHASONE DIPROPIONATE
     Indication: ASTHMA
     Dosage: UNK
     Dates: start: 1970
  2. FOSAMAX [Suspect]
     Active Substance: ALENDRONATE SODIUM
     Indication: ARTHRITIS
     Dosage: 5 MG, QD
     Route: 048
     Dates: start: 20040713
  3. FOSAMAX [Suspect]
     Active Substance: ALENDRONATE SODIUM
     Dosage: 5 MG, QD
     Route: 048
     Dates: start: 20091209
  4. ALENDRONATE SODIUM. [Suspect]
     Active Substance: ALENDRONATE SODIUM
     Dosage: 35 MG, UNK
     Route: 048
     Dates: start: 20080306, end: 20130407
  5. SEREVENT DISKUS [Concomitant]
     Active Substance: SALMETEROL XINAFOATE
     Indication: ASTHMA
     Dosage: UNK
     Dates: start: 1970
  6. THEOPHYLLINE [Concomitant]
     Active Substance: THEOPHYLLINE ANHYDROUS
     Indication: ASTHMA
     Dosage: UNK
     Dates: start: 1970
  7. FOSAMAX [Suspect]
     Active Substance: ALENDRONATE SODIUM
     Indication: OSTEOPENIA
     Dosage: 35 MG, QW
     Route: 048
     Dates: end: 20130429
  8. PREDNISONE. [Concomitant]
     Active Substance: PREDNISONE
     Indication: ASTHMA
     Dosage: UNK
     Dates: start: 1970

REACTIONS (52)
  - Rib fracture [Unknown]
  - Bradycardia [Unknown]
  - Rectocele [Unknown]
  - Staphylococcal infection [Unknown]
  - Ligament sprain [Unknown]
  - Osteoarthritis [Unknown]
  - Hypertension [Unknown]
  - Head injury [Unknown]
  - Incontinence [Unknown]
  - Pollakiuria [Unknown]
  - Open reduction of fracture [Unknown]
  - Cellulitis [Unknown]
  - Dyspnoea [Unknown]
  - Diverticulum [Unknown]
  - Low turnover osteopathy [Unknown]
  - Bursitis [Unknown]
  - Vaginal pessary insertion [Unknown]
  - White blood cell count increased [Unknown]
  - Diverticulitis [Unknown]
  - Wound [Unknown]
  - Limb injury [Unknown]
  - Off label use [Unknown]
  - Cardiac pacemaker insertion [Unknown]
  - Rectal haemorrhage [Unknown]
  - Fall [Unknown]
  - Back injury [Unknown]
  - Aortic arteriosclerosis [Unknown]
  - Skin operation [Unknown]
  - Femur fracture [Unknown]
  - Rhabdomyolysis [Unknown]
  - Myopathy [Unknown]
  - Osteomyelitis [Unknown]
  - Rib fracture [Unknown]
  - Pneumothorax [Recovered/Resolved]
  - Arthralgia [Unknown]
  - Inappropriate schedule of drug administration [Unknown]
  - Gastroenteritis viral [Unknown]
  - Sepsis [Unknown]
  - Blood pressure fluctuation [Unknown]
  - Bundle branch block right [Unknown]
  - Syncope [Unknown]
  - Weight decreased [Unknown]
  - Clostridium difficile colitis [Unknown]
  - Back pain [Unknown]
  - Radius fracture [Unknown]
  - Anaemia [Unknown]
  - Chronic obstructive pulmonary disease [Unknown]
  - Hyperlipidaemia [Unknown]
  - Thyroid neoplasm [Unknown]
  - Supraventricular tachycardia [Unknown]
  - Emphysema [Unknown]
  - Constipation [Unknown]

NARRATIVE: CASE EVENT DATE: 2000
